FAERS Safety Report 5993378-9 (Version None)
Quarter: 2008Q4

REPORT INFORMATION
  Report Type: 
  Country: None (occurrence: None)
  Receive Date: 20081212
  Receipt Date: 20081201
  Transmission Date: 20090506
  Serious: Yes (Other)
  Sender: FDA-Public Use
  Company Number: DE-TEVA-181767ISR

PATIENT
  Age: 56 Year
  Sex: Female
  Weight: 106 kg

DRUGS (1)
  1. METHOTREXATE [Suspect]
     Indication: RHEUMATOID ARTHRITIS
     Route: 058
     Dates: start: 20081001

REACTIONS (2)
  - EPIDERMOLYSIS [None]
  - INJECTION SITE RASH [None]
